FAERS Safety Report 8153779-X (Version None)
Quarter: 2012Q1

REPORT INFORMATION
  Report Type: 
  Country: None (occurrence: None)
  Receive Date: 20120221
  Receipt Date: 20120216
  Transmission Date: 20120608
  Serious: Yes (Hospitalization)
  Sender: FDA-Public Use
  Company Number: US-GLAXOSMITHKLINE-B0719562A

PATIENT
  Age: 60 Year
  Sex: Female

DRUGS (1)
  1. AVANDIA [Suspect]
     Indication: DIABETES MELLITUS
     Dosage: 8MG PER DAY
     Route: 048
     Dates: start: 20000113, end: 20010707

REACTIONS (6)
  - ATRIAL FIBRILLATION [None]
  - CARDIAC PACEMAKER INSERTION [None]
  - MYOCARDIAL INFARCTION [None]
  - RENAL DISORDER [None]
  - MEMORY IMPAIRMENT [None]
  - DIABETIC COMPLICATION [None]
